FAERS Safety Report 8131167-X (Version None)
Quarter: 2012Q1

REPORT INFORMATION
  Report Type: 
  Country: None (occurrence: None)
  Receive Date: 20120209
  Receipt Date: 20120209
  Transmission Date: 20120608
  Serious: No
  Sender: FDA-Public Use
  Company Number: None

PATIENT
  Sex: Male

DRUGS (2)
  1. TEGRETOL [Suspect]
     Indication: EPILEPSY
     Dosage: 200MG QID PO PRIOR TO 1994 TILL PRESENT
     Route: 048
  2. TEGRETOL [Suspect]
     Indication: EPILEPSY
     Dosage: 100 MG DAILY PO  PRIOR TO 1994 TILL PRESENT
     Route: 048

REACTIONS (1)
  - PRODUCT SUBSTITUTION ISSUE [None]
